FAERS Safety Report 26076918 (Version 1)
Quarter: 2025Q4

REPORT INFORMATION
  Report Type: Report from Study
  Country: CA (occurrence: CA)
  Receive Date: 20251121
  Receipt Date: 20251121
  Transmission Date: 20260118
  Serious: Yes (Other)
  Sender: AMARIN PHARMA, INC.
  Company Number: CA-Amarin Pharma  Inc-2025AMR000706

PATIENT
  Age: 63 Year
  Sex: Male

DRUGS (1)
  1. VASCEPA [Suspect]
     Active Substance: ICOSAPENT ETHYL
     Indication: Cardiovascular event prophylaxis
     Dates: start: 20250818, end: 20250829

REACTIONS (7)
  - Arrhythmia [Unknown]
  - Wheezing [Unknown]
  - Palpitations [Unknown]
  - Dyspnoea [Unknown]
  - Myalgia [Unknown]
  - Arthralgia [Unknown]
  - Gout [Unknown]

NARRATIVE: CASE EVENT DATE: 20250801
